FAERS Safety Report 20680609 (Version 3)
Quarter: 2024Q1

REPORT INFORMATION
  Report Type: Spontaneous
  Country: CN (occurrence: CN)
  Receive Date: 20220406
  Receipt Date: 20240226
  Transmission Date: 20240410
  Serious: Yes (Other)
  Sender: FDA-Public Use
  Company Number: CN-PFIZER INC-202200483360

PATIENT
  Age: 13 Year
  Sex: Male
  Weight: 48 kg

DRUGS (5)
  1. AZITHROMYCIN [Suspect]
     Active Substance: AZITHROMYCIN
     Indication: Pneumonia
     Dosage: 0.48 G, 1X/DAY
     Route: 041
     Dates: start: 20220322, end: 20220323
  2. CEFODIZIME SODIUM [Suspect]
     Active Substance: CEFODIZIME SODIUM
     Indication: Pneumonia
     Dosage: 1.9 G, 2X/DAY
     Route: 041
     Dates: start: 20220322, end: 20220323
  3. SODIUM CHLORIDE [Concomitant]
     Active Substance: SODIUM CHLORIDE
     Indication: Vehicle solution use
     Dosage: 100 ML, 2X/DAY
     Route: 041
     Dates: start: 20220322, end: 20220323
  4. SODIUM CHLORIDE [Concomitant]
     Active Substance: SODIUM CHLORIDE
     Indication: Vehicle solution use
     Dosage: 500 ML, 1X/DAY
     Route: 041
     Dates: start: 20220322, end: 20220323
  5. STERILE WATER [Concomitant]
     Active Substance: WATER
     Indication: Vehicle solution use
     Dosage: 5 ML, 1X/DAY
     Route: 041
     Dates: start: 20220322, end: 20220323

REACTIONS (3)
  - Rash erythematous [Recovering/Resolving]
  - Pruritus [Recovering/Resolving]
  - Off label use [Recovering/Resolving]

NARRATIVE: CASE EVENT DATE: 20220322
